FAERS Safety Report 10064214 (Version 2)
Quarter: 2014Q2

REPORT INFORMATION
  Report Type: Report from Study
  Country: JP (occurrence: JP)
  Receive Date: 20140408
  Receipt Date: 20140625
  Transmission Date: 20141212
  Serious: Yes (Death, Life-Threatening)
  Sender: FDA-Public Use
  Company Number: JP-ROCHE-1377494

PATIENT
  Age: 64 Year
  Sex: Female

DRUGS (2)
  1. ALTEPLASE [Suspect]
     Indication: EMBOLIC STROKE
     Route: 042
     Dates: start: 20130425, end: 20130425
  2. RADICUT [Suspect]
     Indication: EMBOLIC STROKE
     Route: 041
     Dates: start: 20130425, end: 20130428

REACTIONS (2)
  - Multi-organ failure [Fatal]
  - Embolism [Unknown]
